FAERS Safety Report 24557983 (Version 1)
Quarter: 2024Q4

REPORT INFORMATION
  Report Type: Spontaneous
  Country: US (occurrence: US)
  Receive Date: 20241028
  Receipt Date: 20241028
  Transmission Date: 20250115
  Serious: Yes (Other)
  Sender: RANBAXY
  Company Number: US-SUN PHARMACEUTICAL INDUSTRIES LTD-2024R1-475802

PATIENT
  Age: 58 Year
  Sex: Male

DRUGS (2)
  1. FINGOLIMOD [Suspect]
     Active Substance: FINGOLIMOD
     Indication: Multiple sclerosis
     Dosage: 0.5 MILLIGRAM, DAILY
     Route: 065
     Dates: start: 201501
  2. FINGOLIMOD [Suspect]
     Active Substance: FINGOLIMOD
     Indication: Lymphopenia
     Dosage: 0.5 MILLIGRAM, QOD
     Route: 065
     Dates: start: 201501

REACTIONS (2)
  - Condition aggravated [Unknown]
  - Fatigue [Unknown]
